FAERS Safety Report 4438471-7 (Version None)
Quarter: 2004Q3

REPORT INFORMATION
  Report Type: 
  Country: None (occurrence: None)
  Receive Date: 20040728
  Receipt Date: 20040322
  Transmission Date: 20050211
  Serious: No
  Sender: FDA-Public Use
  Company Number: USA040362832

PATIENT
  Age: 53 Year
  Sex: Male
  Weight: 74 kg

DRUGS (4)
  1. STRATTERA [Suspect]
     Indication: ATTENTION DEFICIT/HYPERACTIVITY DISORDER
     Dosage: 40 MG/2 DAY
     Dates: start: 20040218
  2. LAMICTAL [Concomitant]
  3. PAXIL [Concomitant]
  4. REMERON [Concomitant]

REACTIONS (6)
  - DYSURIA [None]
  - INSOMNIA [None]
  - LOSS OF LIBIDO [None]
  - POLLAKIURIA [None]
  - URINARY RETENTION [None]
  - URINE FLOW DECREASED [None]
